FAERS Safety Report 9064903 (Version 1)
Quarter: 2013Q1

REPORT INFORMATION
  Report Type: Spontaneous
  Country: GB (occurrence: GB)
  Receive Date: 20130128
  Receipt Date: 20130128
  Transmission Date: 20140127
  Serious: Yes (Life-Threatening, Hospitalization)
  Sender: FDA-Public Use
  Company Number: GB-JNJFOC-20130112718

PATIENT
  Age: 28 Year
  Sex: Female
  Weight: 88 kg

DRUGS (2)
  1. EVRA [Suspect]
     Indication: CONTRACEPTION
     Route: 062
     Dates: end: 20121117
  2. SERTRALINE [Concomitant]
     Indication: DEPRESSION
     Route: 065

REACTIONS (3)
  - Chest pain [Recovered/Resolved with Sequelae]
  - Embolism venous [Recovered/Resolved with Sequelae]
  - Pulmonary embolism [Recovering/Resolving]
